FAERS Safety Report 7806191-4 (Version None)
Quarter: 2011Q4

REPORT INFORMATION
  Report Type: 
  Country: None (occurrence: None)
  Receive Date: 20111011
  Receipt Date: 20111006
  Transmission Date: 20120403
  Serious: Yes (Death, Hospitalization)
  Sender: FDA-Public Use
  Company Number: US-ASTELLAS-2011US002810

PATIENT
  Sex: Female

DRUGS (1)
  1. ERLOTINIB HYDROCHLORIDE [Suspect]
     Indication: LUNG NEOPLASM MALIGNANT
     Dosage: 150 MG, UID/QD
     Route: 048
     Dates: start: 20110526

REACTIONS (9)
  - DIARRHOEA [None]
  - PULMONARY OEDEMA [None]
  - RESPIRATORY FAILURE [None]
  - ANAEMIA [None]
  - NON-SMALL CELL LUNG CANCER [None]
  - ENCEPHALOPATHY [None]
  - PNEUMONIA [None]
  - ERYTHEMA [None]
  - PRURITUS [None]
